FAERS Safety Report 7861430-9 (Version None)
Quarter: 2011Q4

REPORT INFORMATION
  Report Type: 
  Country: None (occurrence: None)
  Receive Date: 20111027
  Receipt Date: 20111024
  Transmission Date: 20120403
  Serious: Yes (Other)
  Sender: FDA-Public Use
  Company Number: BR-PFIZER INC-2011258698

PATIENT
  Age: 61 Year
  Sex: Female
  Weight: 59 kg

DRUGS (5)
  1. METFFORMIN HYDROCHLORIDE [Concomitant]
     Indication: DIABETES MELLITUS
     Dosage: 500 MG, 1X/DAY
  2. VARENICLINE TARTRATE [Suspect]
     Indication: TOBACCO USER
     Dosage: UNK
     Route: 048
     Dates: start: 20110725, end: 20110101
  3. EXFORGE [Concomitant]
     Indication: HYPERTENSION
     Dosage: 5MG/160MG, ONCE DAILY
  4. SIMVASTATIN [Concomitant]
     Indication: BLOOD CHOLESTEROL
     Dosage: 40 MG, 1X/DAY
  5. VARENICLINE TARTRATE [Suspect]
     Dosage: 1 MG, 2X/DAY
     Route: 048
     Dates: start: 20110101, end: 20110101

REACTIONS (2)
  - HYPERSENSITIVITY [None]
  - MEASLES [None]
